FAERS Safety Report 9009010 (Version 2)
Quarter: 2013Q1

REPORT INFORMATION
  Report Type: Spontaneous
  Country: TR (occurrence: TR)
  Receive Date: 20130111
  Receipt Date: 20130131
  Transmission Date: 20140127
  Serious: Yes (Other)
  Sender: FDA-Public Use
  Company Number: TR-PFIZER INC-2013012291

PATIENT
  Age: 52 Year
  Sex: Female

DRUGS (2)
  1. EFEXOR XR [Suspect]
     Indication: DEPRESSION
     Dosage: 75 MG + 75 MG DAILY 150 MG
  2. CARVEDILOL [Concomitant]
     Indication: HYPERTENSION
     Dosage: 6.25

REACTIONS (3)
  - Eye burns [Recovered/Resolved]
  - Vision blurred [Not Recovered/Not Resolved]
  - Eye pain [Recovered/Resolved]
